FAERS Safety Report 15546607 (Version 2)
Quarter: 2018Q4

REPORT INFORMATION
  Report Type: Spontaneous
  Country: US (occurrence: US)
  Receive Date: 20181024
  Receipt Date: 20181029
  Transmission Date: 20190205
  Serious: Yes (Other)
  Sender: FDA-Public Use
  Company Number: US-PFIZER INC-2018430706

PATIENT
  Age: 65 Year
  Sex: Male

DRUGS (7)
  1. AMIKACIN SULFATE. [Concomitant]
     Active Substance: AMIKACIN SULFATE
     Dosage: UNK
  2. RIFAMPIN. [Suspect]
     Active Substance: RIFAMPIN
     Indication: TUBERCULOSIS GASTROINTESTINAL
     Dosage: UNK
  3. LEVOFLOXACIN. [Concomitant]
     Active Substance: LEVOFLOXACIN
     Dosage: UNK
  4. ISONIAZID. [Concomitant]
     Active Substance: ISONIAZID
     Indication: TUBERCULOSIS GASTROINTESTINAL
     Dosage: UNK
  5. RIFABUTIN. [Suspect]
     Active Substance: RIFABUTIN
     Indication: TUBERCULOSIS GASTROINTESTINAL
     Dosage: UNK (STARTED ON DAY 6)
  6. PYRAZINAMIDE. [Concomitant]
     Active Substance: PYRAZINAMIDE
     Indication: TUBERCULOSIS GASTROINTESTINAL
     Dosage: UNK
  7. ETHAMBUTOL [Concomitant]
     Active Substance: ETHAMBUTOL HYDROCHLORIDE
     Indication: TUBERCULOSIS GASTROINTESTINAL
     Dosage: UNK

REACTIONS (2)
  - Therapeutic product cross-reactivity [Recovering/Resolving]
  - Thrombocytopenia [Recovering/Resolving]
